FAERS Safety Report 16005558 (Version 1)
Quarter: 2019Q1

REPORT INFORMATION
  Report Type: Spontaneous
  Country: US (occurrence: US)
  Receive Date: 20190226
  Receipt Date: 20190226
  Transmission Date: 20190418
  Serious: No
  Sender: FDA-Public Use
  Company Number: US-B.I. PHARMACEUTICALS,INC./RIDGEFIELD-2019-BI-006914

PATIENT
  Age: 76 Year
  Sex: Male

DRUGS (2)
  1. PRADAXA [Suspect]
     Active Substance: DABIGATRAN ETEXILATE MESYLATE
     Indication: ATRIAL FIBRILLATION
     Dosage: ONE CAPSULE BID; FORM STRENGTH; 150 MG; FORMULATION; CAPSULE
     Route: 048
     Dates: start: 201701
  2. PREDNISONE. [Concomitant]
     Active Substance: PREDNISONE
     Indication: HYDROCEPHALUS
     Dosage: FORM STRENGTH: 7MG; FORMULATION: CAPLET
     Route: 065

REACTIONS (7)
  - Discharge [Unknown]
  - Contusion [Unknown]
  - Scab [Unknown]
  - Discharge [Unknown]
  - Capillary leak syndrome [Unknown]
  - Cartilage injury [Unknown]
  - Balance disorder [Unknown]

NARRATIVE: CASE EVENT DATE: 201704
